FAERS Safety Report 10706694 (Version 5)
Quarter: 2015Q3

REPORT INFORMATION
  Report Type: Spontaneous
  Country: BR (occurrence: BR)
  Receive Date: 20150113
  Receipt Date: 20150810
  Transmission Date: 20151125
  Serious: Yes (Other)
  Sender: FDA-Public Use
  Company Number: BR-SA-2014SA158984

PATIENT
  Sex: Female

DRUGS (10)
  1. INDERAL [Concomitant]
     Active Substance: PROPRANOLOL HYDROCHLORIDE
     Indication: HYPERTENSION
  2. SOLOSTAR [Concomitant]
     Active Substance: DEVICE
  3. JANUVIA [Concomitant]
     Active Substance: SITAGLIPTIN PHOSPHATE
     Dosage: IN THE MORNING
  4. LANTUS SOLOSTAR [Suspect]
     Active Substance: INSULIN GLARGINE
     Route: 065
     Dates: start: 2010
  5. LANTUS SOLOSTAR [Suspect]
     Active Substance: INSULIN GLARGINE
     Route: 065
  6. CLOPIDOGREL [Concomitant]
     Active Substance: CLOPIDOGREL BISULFATE
     Indication: PROPHYLAXIS
  7. HUMALOG [Concomitant]
     Active Substance: INSULIN LISPRO
     Dosage: DOSE: BASED ON CARBOHYDRATE COUNTING
  8. LIPITOR [Concomitant]
     Active Substance: ATORVASTATIN CALCIUM
     Indication: PROPHYLAXIS
  9. SYNTHROID [Concomitant]
     Active Substance: LEVOTHYROXINE SODIUM
     Indication: THYROID DISORDER
  10. IMOVANE [Concomitant]
     Active Substance: ZOPICLONE

REACTIONS (7)
  - Diabetes mellitus inadequate control [Unknown]
  - Gastrointestinal carcinoma [Recovered/Resolved]
  - Lipodystrophy acquired [Recovering/Resolving]
  - Venous occlusion [Recovered/Resolved]
  - Visual impairment [Not Recovered/Not Resolved]
  - Gastrointestinal tract adenoma [Recovered/Resolved]
  - Venous occlusion [Unknown]

NARRATIVE: CASE EVENT DATE: 2012
